FAERS Safety Report 4306961-3 (Version None)
Quarter: 2004Q1

REPORT INFORMATION
  Report Type: 
  Country: None (occurrence: None)
  Receive Date: 20040225
  Receipt Date: 20040216
  Transmission Date: 20041129
  Serious: No
  Sender: FDA-Public Use
  Company Number: 2004UW02967

PATIENT
  Age: 49 Year
  Sex: Male

DRUGS (13)
  1. CRESTOR [Suspect]
     Dosage: 40 MG QD PO
     Route: 048
     Dates: end: 20040124
  2. CRESTOR [Suspect]
     Dosage: 20 MG QD PO
     Route: 048
     Dates: start: 20040124
  3. EZETROL [Suspect]
     Dosage: 10 MG DAILY
  4. VIOXX [Suspect]
     Dosage: 25 MG DAILY
  5. NIACIN [Concomitant]
  6. ASPIRIN [Concomitant]
  7. PLAVIX [Concomitant]
  8. ATENOLOL [Concomitant]
  9. ACCUPRIL [Concomitant]
  10. ALLOPURINOL [Concomitant]
  11. FOLIC ACID [Concomitant]
  12. VITAMIN C [Concomitant]
  13. GLUCOSAMINE [Concomitant]

REACTIONS (3)
  - BLOOD CREATINE PHOSPHOKINASE INCREASED [None]
  - DRUG INTERACTION [None]
  - HEPATIC ENZYME INCREASED [None]
